FAERS Safety Report 4939300-5 (Version None)
Quarter: 2006Q1

REPORT INFORMATION
  Report Type: 
  Country: None (occurrence: None)
  Receive Date: 20060310
  Receipt Date: 20051128
  Transmission Date: 20060701
  Serious: Yes (Hospitalization)
  Sender: FDA-Public Use
  Company Number: 2005PK02365

PATIENT
  Age: 28123 Day
  Sex: Male

DRUGS (6)
  1. NEXIUM [Suspect]
     Indication: REFLUX OESOPHAGITIS
     Route: 048
     Dates: start: 20051007, end: 20051107
  2. NEXIUM [Suspect]
     Indication: HIATUS HERNIA
     Route: 048
     Dates: start: 20051007, end: 20051107
  3. MOLSIDOMIN [Concomitant]
     Indication: HYPERTENSION
     Route: 048
     Dates: start: 20050120
  4. MOLSIDOMIN [Concomitant]
     Indication: CORONARY ARTERY DISEASE
     Route: 048
     Dates: start: 20050120
  5. RAMIPRIL COMP [Concomitant]
     Indication: HYPERTENSION
     Route: 048
     Dates: start: 20050816
  6. RAMIPRIL COMP [Concomitant]
     Indication: CORONARY ARTERY DISEASE
     Route: 048
     Dates: start: 20050816

REACTIONS (3)
  - CHOLANGITIS [None]
  - CHOLECYSTITIS CHRONIC [None]
  - CHOLELITHIASIS [None]
